FAERS Safety Report 17368315 (Version 1)
Quarter: 2020Q1

REPORT INFORMATION
  Report Type: Report from Study
  Country: US (occurrence: US)
  Receive Date: 20200204
  Receipt Date: 20200204
  Transmission Date: 20200409
  Serious: Yes (Other)
  Sender: FDA-Public Use
  Company Number: US-JNJFOC-20200145881

PATIENT

DRUGS (2)
  1. SIMPONI [Suspect]
     Active Substance: GOLIMUMAB
     Indication: RHEUMATOID ARTHRITIS
     Route: 058
  2. HUMIRA [Suspect]
     Active Substance: ADALIMUMAB
     Indication: RHEUMATOID ARTHRITIS
     Route: 065

REACTIONS (13)
  - Lower respiratory tract infection [Unknown]
  - Malaise [Unknown]
  - Urinary tract infection [Unknown]
  - Nasopharyngitis [Unknown]
  - Breast cancer [Unknown]
  - Headache [Unknown]
  - Vomiting [Unknown]
  - Pneumonia [Unknown]
  - Nausea [Unknown]
  - Influenza [Unknown]
  - Pyrexia [Unknown]
  - Tuberculosis [Unknown]
  - Diarrhoea [Unknown]
